FAERS Safety Report 13364852 (Version 1)
Quarter: 2017Q1

REPORT INFORMATION
  Report Type: Spontaneous
  Country: US (occurrence: US)
  Receive Date: 20170323
  Receipt Date: 20170323
  Transmission Date: 20170429
  Serious: No
  Sender: FDA-Public Use
  Company Number: US-ROCHE-1443355

PATIENT
  Sex: Female

DRUGS (1)
  1. XOLAIR [Suspect]
     Active Substance: OMALIZUMAB
     Indication: RHINITIS ALLERGIC
     Route: 058
     Dates: start: 20120524

REACTIONS (2)
  - Swelling [Unknown]
  - Muscle spasms [Unknown]
